FAERS Safety Report 22241332 (Version 2)
Quarter: 2023Q2

REPORT INFORMATION
  Report Type: Spontaneous
  Country: JP (occurrence: JP)
  Receive Date: 20230421
  Receipt Date: 20230616
  Transmission Date: 20230721
  Serious: Yes (Other)
  Sender: FDA-Public Use
  Company Number: JP-002147023-NVSJ2023JP006470

PATIENT
  Age: 35 Year
  Sex: Female

DRUGS (3)
  1. AMOXICILLIN [Suspect]
     Active Substance: AMOXICILLIN
     Indication: Syphilis
     Dosage: 1500 MG
     Route: 048
  2. PENICILLIN G [Suspect]
     Active Substance: PENICILLIN G
     Indication: Tertiary syphilis
     Dosage: 2.4 MILLION UNITS
     Route: 030
  3. PENICILLIN G [Suspect]
     Active Substance: PENICILLIN G
     Indication: Neurosyphilis
     Dosage: 18 MILLION UNITS/DAY
     Route: 041

REACTIONS (4)
  - Oligohydramnios [Unknown]
  - Maternal exposure during pregnancy [Unknown]
  - Normal newborn [Unknown]
  - Delivery [Unknown]
